FAERS Safety Report 14098087 (Version 1)
Quarter: 2017Q4

REPORT INFORMATION
  Report Type: Spontaneous
  Country: US (occurrence: US)
  Receive Date: 20171016
  Receipt Date: 20171016
  Transmission Date: 20180321
  Serious: No
  Sender: FDA-Public Use
  Company Number: US-AMGEN-USASP2016181817

PATIENT
  Age: 73 Year
  Sex: Female
  Weight: 58.5 kg

DRUGS (8)
  1. CITRICAL D [Concomitant]
  2. BALSALAZIDE [Concomitant]
     Active Substance: BALSALAZIDE
     Indication: GASTRIC DISORDER
     Dosage: 750 MG(THREE TABLETS 3 TIMES A DAY), UNK
  3. HYZAAR [Concomitant]
     Active Substance: HYDROCHLOROTHIAZIDE\LOSARTAN POTASSIUM
     Indication: BLOOD PRESSURE ABNORMAL
     Dosage: UNK MG(5012.5MG PER TABLET), UNK
  4. SYNTHROID [Concomitant]
     Active Substance: LEVOTHYROXINE SODIUM
     Dosage: 100 MUG, UNK
  5. PROLIA [Suspect]
     Active Substance: DENOSUMAB
     Indication: OSTEOPOROSIS POSTMENOPAUSAL
     Dosage: 60 MG, Q6MO
     Route: 065
     Dates: start: 20160103
  6. ALIGN [Concomitant]
     Active Substance: BIFIDOBACTERIUM LONGUM SUBSP. INFANTIS
  7. XANAX [Concomitant]
     Active Substance: ALPRAZOLAM
  8. ZANTAC [Concomitant]
     Active Substance: RANITIDINE HYDROCHLORIDE
     Indication: GASTROOESOPHAGEAL REFLUX DISEASE

REACTIONS (5)
  - Tooth infection [Unknown]
  - Off label use [Unknown]
  - Bone loss [Unknown]
  - Tooth loss [Unknown]
  - Gingival operation [Unknown]
